FAERS Safety Report 6312740-8 (Version None)
Quarter: 2009Q3

REPORT INFORMATION
  Report Type: 
  Country: None (occurrence: None)
  Receive Date: 20090818
  Receipt Date: 20090813
  Transmission Date: 20100115
  Serious: Yes (Hospitalization)
  Sender: FDA-Public Use
  Company Number: FR-BRISTOL-MYERS SQUIBB COMPANY-14696538

PATIENT
  Age: 16 Year
  Sex: Female
  Weight: 68 kg

DRUGS (4)
  1. ABILIFY [Suspect]
     Indication: DELUSION
     Dates: start: 20090726
  2. DEPAKOTE [Interacting]
     Indication: AFFECTIVE DISORDER
     Dosage: TAKEN MORING AND EVENING
     Route: 048
     Dates: start: 20080901
  3. ZYPREXA [Concomitant]
     Indication: DELUSION
     Route: 048
     Dates: start: 20080901
  4. TERCIAN [Concomitant]
     Indication: ANXIETY
     Dosage: 1 DF=20 DROPS 3 TIMES A DAY
     Route: 048
     Dates: start: 20080101

REACTIONS (5)
  - AGGRESSION [None]
  - DRUG INTERACTION [None]
  - DRUG LEVEL DECREASED [None]
  - PSYCHOTIC DISORDER [None]
  - TREATMENT NONCOMPLIANCE [None]
